FAERS Safety Report 7443308-8 (Version None)
Quarter: 2011Q2

REPORT INFORMATION
  Report Type: 
  Country: None (occurrence: None)
  Receive Date: 20110428
  Receipt Date: 20110427
  Transmission Date: 20111010
  Serious: Yes (Other)
  Sender: FDA-Public Use
  Company Number: US-PFIZER INC-2011091063

PATIENT
  Sex: Female
  Weight: 63.492 kg

DRUGS (10)
  1. VICODIN [Concomitant]
     Indication: HEADACHE
     Dosage: [HYDROCODONE BITARTRATE 5MG]/[ACETAMINOPHEN 500MG]
  2. FLOVENT [Concomitant]
     Indication: ASTHMA
     Dosage: UNK
  3. ACETAMINOPHEN [Concomitant]
     Indication: HEADACHE
     Dosage: UNK
  4. AMBIEN [Concomitant]
     Dosage: UNK
  5. PROVENTIL [Concomitant]
     Indication: ASTHMA
     Dosage: UNK
  6. LYRICA [Suspect]
     Indication: TRIGEMINAL NEURALGIA
     Dosage: 50 MG, 2X/DAY
     Route: 048
     Dates: start: 20110101
  7. SINGULAIR [Concomitant]
     Indication: ASTHMA
     Dosage: UNK
  8. LAMICTAL [Concomitant]
     Indication: HEADACHE
     Dosage: UNK
  9. AMITRIPTYLINE [Concomitant]
     Dosage: 20 MG, UNK
  10. BUTALBITAL AND CAFFEINE AND PARACETAMOL [Concomitant]
     Indication: HEADACHE
     Dosage: [BUTALBITAL 500]/[ACETAMINOPHEN 225]/[CAFFEINE 30]

REACTIONS (2)
  - FACIAL PAIN [None]
  - OEDEMA PERIPHERAL [None]
